FAERS Safety Report 12378500 (Version 5)
Quarter: 2017Q1

REPORT INFORMATION
  Report Type: Report from Study
  Country: MZ (occurrence: MZ)
  Receive Date: 20160517
  Receipt Date: 20170113
  Transmission Date: 20170428
  Serious: Yes (Hospitalization, Other)
  Sender: FDA-Public Use
  Company Number: MZ-BRISTOL-MYERS SQUIBB COMPANY-BMS-2016-037701

PATIENT
  Age: 40 Year
  Sex: Female
  Weight: 50 kg

DRUGS (15)
  1. EXTERNAL-ISONIAZID [Suspect]
     Active Substance: ISONIAZID
     Indication: TUBERCULOSIS
     Dosage: 75 MG, UNK
     Route: 048
     Dates: start: 20160324, end: 20160504
  2. EXTERNAL-ETHAMBUTOL [Suspect]
     Active Substance: ETHAMBUTOL HYDROCHLORIDE
     Indication: TUBERCULOSIS
     Dosage: 400 MG, UNK
     Route: 048
     Dates: start: 20160324, end: 20160504
  3. TENOFOVIR DISOPROXIL FUMARATE. [Suspect]
     Active Substance: TENOFOVIR DISOPROXIL FUMARATE
     Indication: PRODUCT USED FOR UNKNOWN INDICATION
     Dosage: UNK
     Route: 065
     Dates: start: 20160509, end: 20160510
  4. LAMIVUDINE. [Suspect]
     Active Substance: LAMIVUDINE
     Indication: HIV INFECTION
     Dosage: UNK UNK, QD
     Route: 065
     Dates: start: 20160418, end: 20160508
  5. EXTERNAL-ISONIAZID [Suspect]
     Active Substance: ISONIAZID
     Indication: PRODUCT USED FOR UNKNOWN INDICATION
     Dosage: 75 MG, Q6H
     Route: 048
     Dates: start: 20160708, end: 20160908
  6. EXTERNAL-RIFAMPIN [Suspect]
     Active Substance: RIFAMPIN
     Indication: TUBERCULOSIS
     Dosage: 150 MG, UNK
     Route: 048
     Dates: start: 20160324, end: 20160504
  7. TENOFOVIR DISOPROXIL FUMARATE. [Suspect]
     Active Substance: TENOFOVIR DISOPROXIL FUMARATE
     Indication: HIV INFECTION
     Dosage: UNK UNK, QD
     Route: 065
     Dates: start: 20160418, end: 20160508
  8. PARACETAMOL [Suspect]
     Active Substance: ACETAMINOPHEN
     Indication: INFLUENZA LIKE ILLNESS
     Dosage: 2 TAB, UNK
     Route: 048
     Dates: start: 20160907, end: 20160907
  9. LEVOFLOXACIN. [Concomitant]
     Active Substance: LEVOFLOXACIN
     Indication: TUBERCULOSIS
     Dosage: 3 TAB, UNK
     Route: 048
     Dates: start: 20160813, end: 20160908
  10. LAMIVUDINE. [Suspect]
     Active Substance: LAMIVUDINE
     Indication: PRODUCT USED FOR UNKNOWN INDICATION
     Dosage: UNK, QD
     Route: 065
     Dates: start: 20160509, end: 20160510
  11. EXTERNAL-RIFAMPIN [Suspect]
     Active Substance: RIFAMPIN
     Indication: PRODUCT USED FOR UNKNOWN INDICATION
     Dosage: 150 MG, Q6H
     Route: 048
     Dates: start: 20160708, end: 20160908
  12. EXTERNAL-SULFAMETHOXAZOLE+TRIMETHOPRIM [Suspect]
     Active Substance: SULFAMETHOXAZOLE\TRIMETHOPRIM
     Indication: PROPHYLAXIS
     Dosage: 2 TAB, QD
     Route: 048
     Dates: start: 20160418, end: 20160501
  13. EFAVIRENZ [Suspect]
     Active Substance: EFAVIRENZ
     Indication: HIV INFECTION
     Dosage: UNK, QD
     Route: 065
     Dates: start: 20160418, end: 20160508
  14. EFAVIRENZ [Suspect]
     Active Substance: EFAVIRENZ
     Indication: PRODUCT USED FOR UNKNOWN INDICATION
     Dosage: UNK QD
     Route: 065
     Dates: start: 20160509, end: 20160510
  15. EXTERNAL-PYRAZINAMIDE [Suspect]
     Active Substance: PYRAZINAMIDE
     Indication: TUBERCULOSIS
     Dosage: 275 MG, UNK
     Route: 048
     Dates: start: 20160324, end: 20160504

REACTIONS (4)
  - Transaminases increased [Recovered/Resolved]
  - Back pain [Not Recovered/Not Resolved]
  - Drug eruption [Recovered/Resolved]
  - Gastroenteritis [Recovered/Resolved]

NARRATIVE: CASE EVENT DATE: 20160426
